FAERS Safety Report 9191626 (Version 1)
Quarter: 2013Q1

REPORT INFORMATION
  Report Type: Spontaneous
  Country: CA (occurrence: CA)
  Receive Date: 20130326
  Receipt Date: 20130326
  Transmission Date: 20140127
  Serious: Yes (Hospitalization)
  Sender: FDA-Public Use
  Company Number: CA-MYLANLABS-2013S1005838

PATIENT
  Age: 4 Decade
  Sex: Female

DRUGS (4)
  1. OLANZAPINE [Suspect]
     Indication: SCHIZOPHRENIA
     Dosage: 5MG AT BEDTIME FOR 4 DAYS THEN 10MG THEREAFTER
     Route: 065
  2. OLANZAPINE [Suspect]
     Indication: SCHIZOPHRENIA
     Dosage: 10MG
     Route: 065
  3. FLUOXETINE [Concomitant]
     Indication: SCHIZOPHRENIA
     Dosage: GRADUALLY INCREASED TO 60MG ONCE DAILY
     Route: 065
  4. FLUOXETINE [Concomitant]
     Indication: SCHIZOPHRENIA
     Route: 065

REACTIONS (1)
  - Mania [Recovered/Resolved]
